FAERS Safety Report 8885728 (Version 2)
Quarter: 2012Q4

REPORT INFORMATION
  Report Type: 
  Country: US (occurrence: US)
  Receive Date: 20121101
  Receipt Date: 20121120
  Transmission Date: 20130627
  Serious: No
  Sender: FDA-Public Use
  Company Number: US-PFIZER INC-2012268387

PATIENT
  Age: 51 Year
  Sex: Female
  Weight: 118 kg

DRUGS (7)
  1. LYRICA [Suspect]
     Indication: SCIATICA
     Dosage: 75 mg, 2x/day
     Route: 048
     Dates: start: 2011, end: 20121024
  2. PROTONIX [Concomitant]
     Dosage: UNK
  3. HYDROCODONE [Concomitant]
     Dosage: UNK
  4. CELEXA [Concomitant]
     Dosage: UNK
  5. TAGAMET [Concomitant]
     Dosage: UNK
  6. GEODON [Concomitant]
     Dosage: UNK
  7. LISINOPRIL [Concomitant]
     Dosage: UNK

REACTIONS (1)
  - Burning sensation [Unknown]
